FAERS Safety Report 7562296-7 (Version None)
Quarter: 2011Q2

REPORT INFORMATION
  Report Type: 
  Country: None (occurrence: None)
  Receive Date: 20110622
  Receipt Date: 20110610
  Transmission Date: 20111010
  Serious: Yes (Hospitalization)
  Sender: FDA-Public Use
  Company Number: IT-ELI_LILLY_AND_COMPANY-IT201106004093

PATIENT

DRUGS (1)
  1. ALIMTA [Suspect]
     Indication: LUNG ADENOCARCINOMA
     Dosage: 750 UNK, UNKNOWN
     Route: 042
     Dates: start: 20100603, end: 20100726

REACTIONS (7)
  - DYSURIA [None]
  - HYPONATRAEMIA [None]
  - RALES [None]
  - ESCHERICHIA URINARY TRACT INFECTION [None]
  - HYPOTENSION [None]
  - NORMOCHROMIC NORMOCYTIC ANAEMIA [None]
  - HYPOKALAEMIA [None]
